FAERS Safety Report 14377204 (Version 1)
Quarter: 2018Q1

REPORT INFORMATION
  Report Type: Spontaneous
  Country: US (occurrence: US)
  Receive Date: 20180111
  Receipt Date: 20180111
  Transmission Date: 20180509
  Serious: No
  Sender: FDA-Public Use
  Company Number: US-DRREDDYS-USA/USA/17/0093384

PATIENT
  Age: 52 Year
  Sex: Female
  Weight: 75.5 kg

DRUGS (2)
  1. HABITROL [Suspect]
     Active Substance: NICOTINE
     Indication: SMOKING CESSATION THERAPY
     Route: 062
     Dates: start: 20170820, end: 20170901
  2. HABITROL [Suspect]
     Active Substance: NICOTINE
     Route: 065

REACTIONS (4)
  - Constipation [Recovering/Resolving]
  - Irritability [Recovering/Resolving]
  - Withdrawal syndrome [Recovering/Resolving]
  - Insomnia [Recovering/Resolving]

NARRATIVE: CASE EVENT DATE: 20170901
